FAERS Safety Report 8184175-7 (Version None)
Quarter: 2012Q1

REPORT INFORMATION
  Report Type: 
  Country: None (occurrence: None)
  Receive Date: 20120305
  Receipt Date: 20120223
  Transmission Date: 20120608
  Serious: Yes (Death, Life-Threatening, Hospitalization)
  Sender: FDA-Public Use
  Company Number: DK-JNJFOC-20111102127

PATIENT
  Sex: Male

DRUGS (4)
  1. REMICADE [Suspect]
     Indication: RHEUMATOID ARTHRITIS
     Route: 042
     Dates: start: 20090625
  2. HYDROXYCHLOROQUINE SULFATE [Concomitant]
     Route: 065
     Dates: start: 20090406, end: 20100125
  3. METHOTREXATE [Suspect]
     Indication: RHEUMATOID ARTHRITIS
     Route: 065
     Dates: start: 20090208
  4. REMICADE [Suspect]
     Dosage: DOSE STRENGTH: 100MG
     Route: 042
     Dates: start: 20091120, end: 20111021

REACTIONS (5)
  - PNEUMOCYSTIS JIROVECI PNEUMONIA [None]
  - DYSPNOEA [None]
  - COUGH [None]
  - PULMONARY FIBROSIS [None]
  - PYREXIA [None]
